FAERS Safety Report 25741591 (Version 1)
Quarter: 2025Q3

REPORT INFORMATION
  Report Type: Spontaneous
  Country: US (occurrence: None)
  Receive Date: 20250829
  Receipt Date: 20250829
  Transmission Date: 20251021
  Serious: Yes (Disabling, Other)
  Sender: FDA-CTU
  Company Number: None

PATIENT
  Age: 39 Month
  Sex: Male
  Weight: 121.5 kg

DRUGS (1)
  1. ABILIFY [Suspect]
     Active Substance: ARIPIPRAZOLE
     Dates: start: 20250808

REACTIONS (3)
  - Brain fog [None]
  - Concussion [None]
  - Feeling abnormal [None]

NARRATIVE: CASE EVENT DATE: 20250826
